FAERS Safety Report 7517962-6 (Version None)
Quarter: 2011Q2

REPORT INFORMATION
  Report Type: 
  Country: None (occurrence: None)
  Receive Date: 20110527
  Receipt Date: 20110527
  Transmission Date: 20111010
  Serious: Yes (Other)
  Sender: FDA-Public Use
  Company Number: None

PATIENT
  Age: 59 Year
  Sex: Female
  Weight: 53 kg

DRUGS (1)
  1. ATRIPLA [Suspect]
     Indication: HIV INFECTION
     Dosage: 1 TABLET DAILY ORAL  MANY YEARS
     Route: 048

REACTIONS (3)
  - PRODUCT COUNTERFEIT [None]
  - CD4 LYMPHOCYTES DECREASED [None]
  - BLOOD HIV RNA INCREASED [None]
